FAERS Safety Report 8033899-0 (Version None)
Quarter: 2012Q1

REPORT INFORMATION
  Report Type: 
  Country: None (occurrence: None)
  Receive Date: 20120110
  Receipt Date: 20120102
  Transmission Date: 20120608
  Serious: Yes (Hospitalization)
  Sender: FDA-Public Use
  Company Number: FR-ELI_LILLY_AND_COMPANY-FR201201000065

PATIENT
  Sex: Female

DRUGS (3)
  1. ATARAX [Concomitant]
     Dosage: 25 MG, UNK
     Route: 048
     Dates: start: 20090101, end: 20091015
  2. PROZAC [Suspect]
     Indication: DEPRESSION
     Dosage: 20 MG, QD
     Dates: start: 20091101, end: 20111015
  3. AZILECT [Concomitant]
     Indication: PARKINSON'S DISEASE
     Dosage: 1 MG, QD
     Route: 048
     Dates: start: 20110221, end: 20111015

REACTIONS (4)
  - CONFUSIONAL STATE [None]
  - GAIT DISTURBANCE [None]
  - HALLUCINATIONS, MIXED [None]
  - FALL [None]
